FAERS Safety Report 6894645-7 (Version None)
Quarter: 2010Q3

REPORT INFORMATION
  Report Type: 
  Country: None (occurrence: None)
  Receive Date: 20100802
  Receipt Date: 20100723
  Transmission Date: 20110219
  Serious: Yes (Hospitalization, Other)
  Sender: FDA-Public Use
  Company Number: US-ASTRAZENECA-2010SE34921

PATIENT
  Age: 58 Year
  Sex: Female

DRUGS (22)
  1. PULMICORT FLEXHALER [Suspect]
     Indication: OBSTRUCTIVE AIRWAYS DISORDER
     Dosage: 180 MCG TWO PUFFS TWICE A DAY
     Route: 055
  2. CARDIZEM [Concomitant]
  3. LASIX [Concomitant]
  4. KDUR [Concomitant]
  5. LOMOTIL [Concomitant]
  6. ZOFRAN [Concomitant]
  7. BACLOFEN [Concomitant]
  8. REQUIP [Concomitant]
  9. CLONOPIN [Concomitant]
  10. KEPRA [Concomitant]
  11. LEVEMIR [Concomitant]
  12. CELEXA [Concomitant]
  13. XOPENEX [Concomitant]
  14. CALTRATE PLUS D [Concomitant]
  15. ASPIRIN [Concomitant]
  16. OMEPRAZOLE [Concomitant]
  17. IMITREX [Concomitant]
  18. PREDNISONE [Concomitant]
  19. PILOCAR [Concomitant]
  20. BONIVA [Concomitant]
  21. ALPHAGAN [Concomitant]
  22. XALATAN [Concomitant]

REACTIONS (4)
  - BRONCHITIS [None]
  - GLAUCOMA SURGERY [None]
  - PNEUMONIA [None]
  - THROMBOSIS [None]
